FAERS Safety Report 10156499 (Version 1)
Quarter: 2014Q2

REPORT INFORMATION
  Report Type: Spontaneous
  Country: SG (occurrence: SG)
  Receive Date: 20140507
  Receipt Date: 20140507
  Transmission Date: 20141212
  Serious: Yes (Death)
  Sender: FDA-Public Use
  Company Number: SG-ROCHE-1393034

PATIENT
  Age: 75 Year
  Sex: Female
  Weight: 53 kg

DRUGS (6)
  1. KADCYLA [Suspect]
     Indication: HER-2 POSITIVE BREAST CANCER
     Dosage: IV KADCYLA 200MG ONCE EVERY 3 WEEKS
     Route: 042
     Dates: start: 20140321, end: 20140321
  2. METFORMIN [Concomitant]
     Indication: DIABETES MELLITUS
     Dosage: METFORMIN 500MG TDS
     Route: 048
  3. GLIPIZIDE [Concomitant]
     Indication: DIABETES MELLITUS
     Dosage: GLIPIZIDE 10MG BD
     Route: 048
  4. TELMISARTAN [Concomitant]
     Indication: HYPERTENSION
     Dosage: TELMISARTAN 40MG DAILY
     Route: 048
  5. SIMVASTATIN [Concomitant]
     Indication: HYPERLIPIDAEMIA
     Dosage: SIMVASTATIN 30MG DAILY
     Route: 048
  6. THYROXINE [Concomitant]
     Indication: HYPOTHYROIDISM
     Dosage: THYROXINE 25MCG DAILY
     Route: 048

REACTIONS (2)
  - Hyperbilirubinaemia [Fatal]
  - Transaminases increased [Fatal]
